FAERS Safety Report 20836304 (Version 1)
Quarter: 2022Q2

REPORT INFORMATION
  Report Type: 
  Country: None (occurrence: None)
  Receive Date: 20220517
  Receipt Date: 20220517
  Transmission Date: 20220721
  Serious: No
  Sender: FDA-Public Use
  Company Number: US-ROCHE-3091184

PATIENT
  Age: 53 Year

DRUGS (1)
  1. OCREVUS [Suspect]
     Active Substance: OCRELIZUMAB
     Dosage: (PRESCRIBED AS INFUSE 300 MG IV IN DAY 1 AND 15 THEN 600 MG IV EVERY 6 MONTHS)?DATE OF TREATMENT: 02
     Dates: start: 20211120

REACTIONS (1)
  - COVID-19 [None]

NARRATIVE: CASE EVENT DATE: 20220504
